FAERS Safety Report 12309770 (Version 1)
Quarter: 2016Q2

REPORT INFORMATION
  Report Type: Spontaneous
  Country: US (occurrence: None)
  Receive Date: 20160426
  Receipt Date: 20160426
  Transmission Date: 20160815
  Serious: No
  Sender: FDA-Public Use
  Company Number: None

PATIENT
  Age: 54 Year
  Sex: Female

DRUGS (1)
  1. AMLODIPINE [Suspect]
     Active Substance: AMLODIPINE BESYLATE
     Indication: HYPERTENSION
     Dosage: 1 QD  2.5 - ORAL
     Route: 048
     Dates: start: 20160404

REACTIONS (3)
  - Dry mouth [None]
  - Palpitations [None]
  - Headache [None]

NARRATIVE: CASE EVENT DATE: 201604
